FAERS Safety Report 19437667 (Version 1)
Quarter: 2021Q2

REPORT INFORMATION
  Report Type: Spontaneous
  Country: GB (occurrence: GB)
  Receive Date: 20210618
  Receipt Date: 20210618
  Transmission Date: 20210717
  Serious: Yes (Other)
  Sender: FDA-Public Use
  Company Number: NVSC2020GB309925

PATIENT
  Age: 54 Year
  Sex: Female

DRUGS (10)
  1. TEGRETOL [Suspect]
     Active Substance: CARBAMAZEPINE
     Dosage: 1200 MG (3 YEARS AGO)
     Route: 065
  2. LYRICA [Concomitant]
     Active Substance: PREGABALIN
     Indication: PRODUCT USED FOR UNKNOWN INDICATION
     Dosage: 250 MG
     Route: 065
  3. NAPROXEN. [Concomitant]
     Active Substance: NAPROXEN
     Indication: PRODUCT USED FOR UNKNOWN INDICATION
     Route: 065
  4. TEGRETOL [Suspect]
     Active Substance: CARBAMAZEPINE
     Indication: EPILEPSY
     Dosage: UNK (SINCE THEY WERE 7 YEARS OLD)
     Route: 065
  5. TEGRETOL [Suspect]
     Active Substance: CARBAMAZEPINE
     Dosage: 400 MG
     Route: 065
     Dates: start: 2015
  6. TEGRETOL [Suspect]
     Active Substance: CARBAMAZEPINE
     Dosage: 400 MG, BID (100 IN THE MORNING AND 300 AT NIGHT)
     Route: 065
  7. TEGRETOL [Suspect]
     Active Substance: CARBAMAZEPINE
     Dosage: 800 MG
     Route: 065
  8. TEGRETOL [Suspect]
     Active Substance: CARBAMAZEPINE
     Dosage: 200 MG, BID
     Route: 048
  9. TEGRETOL [Suspect]
     Active Substance: CARBAMAZEPINE
     Dosage: 1400 MG (FOR A COUPLE OF YEARS )
     Route: 065
  10. LAMICTAL [Concomitant]
     Active Substance: LAMOTRIGINE
     Indication: PRODUCT USED FOR UNKNOWN INDICATION
     Dosage: 400 MG
     Route: 065

REACTIONS (16)
  - Arthritis [Unknown]
  - Back pain [Unknown]
  - Wrong technique in product usage process [Unknown]
  - Osteoarthritis [Unknown]
  - Bone pain [Unknown]
  - Spinal osteoarthritis [Unknown]
  - Sciatica [Unknown]
  - Osteopenia [Unknown]
  - Fall [Unknown]
  - Foot deformity [Unknown]
  - Meningitis bacterial [Unknown]
  - Epilepsy [Unknown]
  - Balance disorder [Unknown]
  - Sleep disorder [Unknown]
  - Nervous system disorder [Unknown]
  - Vision blurred [Unknown]

NARRATIVE: CASE EVENT DATE: 2000
